FAERS Safety Report 5616293-9 (Version None)
Quarter: 2008Q1

REPORT INFORMATION
  Report Type: 
  Country: None (occurrence: None)
  Receive Date: 20080204
  Receipt Date: 20071221
  Transmission Date: 20080703
  Serious: Yes (Hospitalization)
  Sender: FDA-Public Use
  Company Number: ACO_00403_2007

PATIENT
  Sex: Female
  Weight: 72.5755 kg

DRUGS (3)
  1. ZANAFLEX [Suspect]
     Indication: MUSCLE SPASMS
     Dosage: (1 TABLET ORAL)
     Route: 048
  2. REMERON [Concomitant]
  3. EFEXOR /01233801/ [Concomitant]

REACTIONS (7)
  - BLOOD GLUCOSE INCREASED [None]
  - CYANOSIS [None]
  - DIZZINESS [None]
  - FALL [None]
  - RESPIRATORY ARREST [None]
  - SYNCOPE [None]
  - URINARY INCONTINENCE [None]
